FAERS Safety Report 13059703 (Version 3)
Quarter: 2019Q4

REPORT INFORMATION
  Report Type: Spontaneous
  Country: US (occurrence: US)
  Receive Date: 20161223
  Receipt Date: 20191021
  Transmission Date: 20200122
  Serious: Yes (Other)
  Sender: FDA-Public Use
  Company Number: US-ELI_LILLY_AND_COMPANY-US201612007008

PATIENT
  Sex: Male

DRUGS (7)
  1. LEVITRA [Concomitant]
     Active Substance: VARDENAFIL HYDROCHLORIDE
     Indication: ERECTILE DYSFUNCTION
     Dosage: 20 MG, WEEKLY (1/W)
     Route: 065
     Dates: start: 20120927, end: 20120930
  2. LUNESTA [Concomitant]
     Active Substance: ESZOPICLONE
     Indication: INSOMNIA
     Dosage: UNK
     Dates: start: 20120830
  3. LISINOPRIL. [Concomitant]
     Active Substance: LISINOPRIL
     Indication: BLOOD PRESSURE INCREASED
     Dosage: UNK
     Dates: start: 20110213, end: 2015
  4. VIAGRA [Concomitant]
     Active Substance: SILDENAFIL CITRATE
     Indication: PRODUCT USED FOR UNKNOWN INDICATION
     Dosage: 100 MG, WEEKLY (1/W)
     Route: 065
     Dates: start: 20120830, end: 20150123
  5. AMLODIPINE [Concomitant]
     Active Substance: AMLODIPINE BESYLATE
     Indication: BLOOD PRESSURE INCREASED
     Dosage: UNK
     Dates: start: 20120914
  6. CIALIS [Suspect]
     Active Substance: TADALAFIL
     Indication: ERECTILE DYSFUNCTION
     Dosage: 20 MG, WEEKLY (1/W)
     Route: 065
     Dates: start: 20120217, end: 20130920
  7. TERAZOSIN [Concomitant]
     Active Substance: TERAZOSIN HYDROCHLORIDE
     Indication: BENIGN PROSTATIC HYPERPLASIA
     Dosage: UNK
     Dates: start: 20110301, end: 2018

REACTIONS (3)
  - Injury [Unknown]
  - Pain [Unknown]
  - Malignant melanoma [Recovered/Resolved]

NARRATIVE: CASE EVENT DATE: 20120509
